FAERS Safety Report 15292336 (Version 3)
Quarter: 2018Q3

REPORT INFORMATION
  Report Type: Report from Study
  Country: TR (occurrence: TR)
  Receive Date: 20180818
  Receipt Date: 20180820
  Transmission Date: 20181010
  Serious: Yes (Other)
  Sender: FDA-Public Use
  Company Number: TR-ACCORD-070724

PATIENT
  Age: 78 Year

DRUGS (3)
  1. METFORMIN [Concomitant]
     Active Substance: METFORMIN HYDROCHLORIDE
  2. METHOTREXATE. [Suspect]
     Active Substance: METHOTREXATE
     Indication: RHEUMATOID ARTHRITIS
     Dosage: 7.5 MG/DAY EVERY DAY FOR THE LAST 1 WEEK
  3. PREDNISOLONE. [Concomitant]
     Active Substance: PREDNISOLONE

REACTIONS (5)
  - Pancytopenia [Recovered/Resolved]
  - Mouth ulceration [Unknown]
  - Dermatitis bullous [Unknown]
  - Mucosal inflammation [Unknown]
  - Incorrect dose administered [Unknown]
